FAERS Safety Report 10067746 (Version 2)
Quarter: 2014Q2

REPORT INFORMATION
  Report Type: Spontaneous
  Country: CH (occurrence: CH)
  Receive Date: 20140409
  Receipt Date: 20140623
  Transmission Date: 20141212
  Serious: Yes (Hospitalization, Other)
  Sender: FDA-Public Use
  Company Number: CH-009507513-1404CHE002271

PATIENT
  Age: 29 Year
  Sex: Female

DRUGS (2)
  1. NUVARING [Suspect]
     Indication: CONTRACEPTION
     Dosage: 1 DF, CYCLICAL
     Route: 067
     Dates: start: 2012, end: 20130902
  2. BETAFERON [Suspect]
     Indication: CLINICALLY ISOLATED SYNDROME
     Dosage: 1 DF, QOD
     Route: 058
     Dates: start: 201306, end: 20130902

REACTIONS (2)
  - Antiphospholipid syndrome [Unknown]
  - Cerebral infarction [Recovering/Resolving]
